FAERS Safety Report 22135437 (Version 1)
Quarter: 2023Q1

REPORT INFORMATION
  Report Type: Spontaneous
  Country: CN (occurrence: CN)
  Receive Date: 20230324
  Receipt Date: 20230324
  Transmission Date: 20230418
  Serious: Yes (Other)
  Sender: FDA-Public Use
  Company Number: CN-ELI_LILLY_AND_COMPANY-CN202303006884

PATIENT
  Age: 67 Year
  Sex: Male
  Weight: 78 kg

DRUGS (6)
  1. PEMETREXED [Suspect]
     Active Substance: PEMETREXED
     Indication: Lung neoplasm malignant
     Dosage: 1 G, CYCLICAL
     Route: 041
     Dates: start: 20210603, end: 20211228
  2. PEMETREXED [Suspect]
     Active Substance: PEMETREXED
     Dosage: 1 G, CYCLICAL
     Route: 041
     Dates: start: 20220217, end: 20220812
  3. KEYTRUDA [Suspect]
     Active Substance: PEMBROLIZUMAB
     Indication: Lung neoplasm malignant
     Dosage: 200 MG, CYCLICAL
     Route: 041
     Dates: start: 20210603, end: 20211228
  4. KEYTRUDA [Suspect]
     Active Substance: PEMBROLIZUMAB
     Dosage: 200 MG, CYCLICAL
     Route: 041
     Dates: start: 20220217, end: 20220812
  5. CARBOPLATIN [Suspect]
     Active Substance: CARBOPLATIN
     Indication: Lung neoplasm malignant
     Dosage: 500 MG, CYCLICAL
     Route: 041
     Dates: start: 20210603, end: 20210830
  6. BEVACIZUMAB [Suspect]
     Active Substance: BEVACIZUMAB
     Indication: Lung neoplasm malignant
     Dosage: 600 MG, CYCLICAL
     Route: 041
     Dates: start: 20210714, end: 20210924

REACTIONS (7)
  - Coronary artery disease [Unknown]
  - Malignant neoplasm progression [Recovering/Resolving]
  - Pulmonary embolism [Recovering/Resolving]
  - Thrombocytopenia [Recovered/Resolved]
  - Anaemia [Not Recovered/Not Resolved]
  - Hypoalbuminaemia [Recovered/Resolved]
  - Therapy partial responder [Unknown]

NARRATIVE: CASE EVENT DATE: 20210712
